FAERS Safety Report 6695421-0 (Version None)
Quarter: 2010Q2

REPORT INFORMATION
  Report Type: 
  Country: None (occurrence: None)
  Receive Date: 20100422
  Receipt Date: 20100422
  Transmission Date: 20101027
  Serious: Yes (Other)
  Sender: FDA-Public Use
  Company Number: None

PATIENT
  Age: 77 Year
  Sex: Male
  Weight: 74.8435 kg

DRUGS (1)
  1. CELEBREX [Suspect]
     Indication: MUSCLE RELAXANT THERAPY
     Dosage: CAPSULE
     Dates: start: 20100113

REACTIONS (6)
  - DYSGRAPHIA [None]
  - FEELING ABNORMAL [None]
  - MUSCULOSKELETAL DISORDER [None]
  - PRURITUS [None]
  - RASH PUSTULAR [None]
  - SCAB [None]
